FAERS Safety Report 5308111-3 (Version None)
Quarter: 2007Q2

REPORT INFORMATION
  Report Type: 
  Country: None (occurrence: None)
  Receive Date: 20070426
  Receipt Date: 20070417
  Transmission Date: 20071010
  Serious: Yes (Other)
  Sender: FDA-Public Use
  Company Number: PHBS2007US06761

PATIENT
  Age: 8 Year
  Sex: Male

DRUGS (3)
  1. CYCLOSPORINE [Suspect]
     Indication: RENAL TRANSPLANT
     Route: 065
  2. AZATHIOPRINE [Suspect]
     Indication: RENAL TRANSPLANT
     Route: 065
  3. PREDNISONE TAB [Suspect]
     Indication: RENAL TRANSPLANT
     Route: 065

REACTIONS (4)
  - HAEMODIALYSIS [None]
  - MELANOCYTIC NAEVUS [None]
  - RASH MACULAR [None]
  - RENAL FAILURE [None]
